FAERS Safety Report 7387553 (Version 2)
Quarter: 2012Q4

REPORT INFORMATION
  Report Type: 
  Country: US (occurrence: US)
  Receive Date: 20100514
  Receipt Date: 20120918
  Transmission Date: 20130627
  Serious: No
  Sender: FDA-Public Use
  Company Number: US-BIOGENIDEC-2010BI015386

PATIENT
  Sex: Female

DRUGS (2)
  1. AVONEX [Suspect]
     Indication: MULTIPLE SCLEROSIS
     Route: 030
  2. AVONEX [Suspect]
     Indication: MULTIPLE SCLEROSIS
     Route: 030
     Dates: start: 20100410

REACTIONS (7)
  - Diabetes mellitus [Not Recovered/Not Resolved]
  - Influenza [Unknown]
  - Musculoskeletal disorder [Unknown]
  - Headache [Unknown]
  - Emotional distress [Unknown]
  - Anxiety [Recovered/Resolved]
  - Pain in extremity [Not Recovered/Not Resolved]
